FAERS Safety Report 16050024 (Version 1)
Quarter: 2019Q1

REPORT INFORMATION
  Report Type: Spontaneous
  Country: GB (occurrence: GB)
  Receive Date: 20190308
  Receipt Date: 20190308
  Transmission Date: 20190418
  Serious: Yes (Other)
  Sender: FDA-Public Use
  Company Number: GB-ACCORD-110909

PATIENT
  Age: 28 Year
  Sex: Female

DRUGS (6)
  1. ALVERINE [Concomitant]
     Active Substance: ALVERINE
  2. BUSCOPAN [Concomitant]
     Active Substance: BUTYLSCOPOLAMINE BROMIDE
  3. FLUOXETINE [Concomitant]
     Active Substance: FLUOXETINE HYDROCHLORIDE
  4. MEBEVERINE [Concomitant]
     Active Substance: MEBEVERINE
  5. SERTRALINE [Suspect]
     Active Substance: SERTRALINE HYDROCHLORIDE
     Indication: ANXIETY
     Route: 048
  6. MINTEC [Concomitant]

REACTIONS (1)
  - Irritable bowel syndrome [Not Recovered/Not Resolved]
